FAERS Safety Report 9972974 (Version 2)
Quarter: 2014Q1

REPORT INFORMATION
  Report Type: Report from Study
  Country: BR (occurrence: BR)
  Receive Date: 20140306
  Receipt Date: 20140306
  Transmission Date: 20141002
  Serious: Yes (Other)
  Sender: FDA-Public Use
  Company Number: PHHY2014BR002114

PATIENT
  Sex: Male
  Weight: 62 kg

DRUGS (8)
  1. DIOVAN TRIPLE [Suspect]
     Indication: HYPERTENSION
     Dosage: ONE TABLET (160 MG VALS, 5 MG AMLO, 12.5 MG HCTZ) IN MORNING AND ONE 5MG TABLET AT NIGHT
     Route: 048
     Dates: start: 2010, end: 20140107
  2. DIOVAN TRIPLE [Suspect]
     Dosage: 1 DF, (160 MG VALS, 5 MG AMLO, 12.5 MG HCTZ)
  3. DIOVAN [Suspect]
     Indication: HYPERTENSION
     Dosage: 80 MG, UNK
     Route: 048
  4. MONOCORDIL [Concomitant]
     Indication: CARDIAC DISORDER
     Dosage: 50 MG, UNK
     Dates: start: 201001, end: 20140106
  5. MONOCORDIL [Concomitant]
     Indication: HYPERTENSION
  6. AAS [Concomitant]
     Dosage: UNK UKN, UNK
  7. CLOPIDOGREL SANDOZ//CLOPIDOGREL BISULFATE [Concomitant]
     Indication: COAGULOPATHY
     Dosage: 5 MG, UNK
  8. ROSUVASTATIN CALCIUM [Concomitant]
     Indication: BLOOD CHOLESTEROL ABNORMAL
     Dosage: 10 MG, UNK

REACTIONS (5)
  - Prostate cancer [Recovering/Resolving]
  - Neoplasm [Recovered/Resolved]
  - Blood pressure fluctuation [Recovered/Resolved]
  - Blood pressure decreased [Recovering/Resolving]
  - Wrong technique in drug usage process [Unknown]
